FAERS Safety Report 7091677-3 (Version None)
Quarter: 2010Q4

REPORT INFORMATION
  Report Type: 
  Country: None (occurrence: None)
  Receive Date: 20101109
  Receipt Date: 20090619
  Transmission Date: 20110411
  Serious: No
  Sender: FDA-Public Use
  Company Number: US-KINGPHARMUSA00001-K200900733

PATIENT
  Sex: Male
  Weight: 76.644 kg

DRUGS (9)
  1. FLECTOR [Suspect]
     Indication: MUSCULOSKELETAL PAIN
     Dosage: 1 PATCH, QD
     Route: 061
     Dates: start: 20090301, end: 20090618
  2. METOPROLOL [Concomitant]
     Indication: HYPERTENSION
     Dosage: 50 MG, BID
     Route: 048
  3. NORVASC [Concomitant]
     Indication: HYPERTENSION
     Dosage: 50 UNK, BID
     Route: 048
  4. PROSCAR [Concomitant]
     Dosage: UNK
  5. ZETIA [Concomitant]
     Indication: BLOOD CHOLESTEROL INCREASED
     Dosage: UNK
  6. PLAVIX [Concomitant]
     Dosage: 75 MG, QD
  7. FLOMAX [Concomitant]
     Dosage: UNK
  8. PREDNISONE [Concomitant]
     Indication: ARTHRITIS
     Dosage: UNK
  9. WYGESIC [Concomitant]
     Dosage: UNK

REACTIONS (1)
  - HAEMORRHAGE [None]
